FAERS Safety Report 18529284 (Version 3)
Quarter: 2023Q1

REPORT INFORMATION
  Report Type: Spontaneous
  Country: US (occurrence: US)
  Receive Date: 20201120
  Receipt Date: 20230317
  Transmission Date: 20230418
  Serious: No
  Sender: FDA-Public Use
  Company Number: US-PFIZER INC-2020455068

PATIENT
  Age: 70 Year
  Sex: Female

DRUGS (2)
  1. DEMEROL [Suspect]
     Active Substance: MEPERIDINE HYDROCHLORIDE
     Dosage: UNK
  2. BACTRIM [Suspect]
     Active Substance: SULFAMETHOXAZOLE\TRIMETHOPRIM
     Dosage: UNK

REACTIONS (1)
  - Drug hypersensitivity [Unknown]
